FAERS Safety Report 4525104-4 (Version None)
Quarter: 2004Q4

REPORT INFORMATION
  Report Type: 
  Country: None (occurrence: None)
  Receive Date: 20041213
  Receipt Date: 20030605
  Transmission Date: 20050328
  Serious: Yes (Hospitalization, Disabling)
  Sender: FDA-Public Use
  Company Number: US-MERCK-0306USA00791

PATIENT
  Age: 45 Year
  Sex: Male

DRUGS (13)
  1. VIOXX [Suspect]
     Route: 048
  2. METHOTREXATE [Concomitant]
     Route: 065
  3. CELEBREX [Concomitant]
     Route: 065
  4. DELTASONE [Concomitant]
     Route: 065
  5. FOLIC ACID [Concomitant]
     Route: 065
  6. PROCANBID [Concomitant]
     Route: 065
  7. TYLENOL (CAPLET) [Concomitant]
     Route: 065
  8. ASPIRIN [Concomitant]
     Route: 065
  9. ASPIRIN [Concomitant]
     Route: 065
     Dates: start: 20000912
  10. ZANTAC [Concomitant]
     Route: 065
  11. PROVENTIL [Concomitant]
     Route: 055
  12. VASOTEC [Concomitant]
     Route: 048
  13. LASIX [Concomitant]
     Route: 042

REACTIONS (13)
  - ACUTE MYOCARDIAL INFARCTION [None]
  - ADVERSE EVENT [None]
  - ANGINA UNSTABLE [None]
  - ATELECTASIS [None]
  - CHRONIC OBSTRUCTIVE AIRWAYS DISEASE [None]
  - CORONARY ARTERY DISEASE [None]
  - CORONARY ARTERY OCCLUSION [None]
  - DEPRESSION [None]
  - HYPERLIPIDAEMIA [None]
  - HYPERTENSION [None]
  - HYPERTENSIVE HEART DISEASE [None]
  - MYOCARDIAL INFARCTION [None]
  - POLYTRAUMATISM [None]
